FAERS Safety Report 11240597 (Version 3)
Quarter: 2015Q3

REPORT INFORMATION
  Report Type: Spontaneous
  Country: US (occurrence: US)
  Receive Date: 20150706
  Receipt Date: 20150729
  Transmission Date: 20151125
  Serious: Yes (Other)
  Sender: FDA-Public Use
  Company Number: US-SA-2015SA094795

PATIENT
  Age: 82 Year
  Sex: Male

DRUGS (2)
  1. SOLOSTAR [Suspect]
     Active Substance: DEVICE
     Indication: TYPE 2 DIABETES MELLITUS
  2. LANTUS SOLOSTAR [Suspect]
     Active Substance: INSULIN GLARGINE
     Indication: TYPE 2 DIABETES MELLITUS
     Dosage: 10U-25U  SLIDING
     Route: 065

REACTIONS (4)
  - Myocardial infarction [Unknown]
  - Poor quality sleep [Unknown]
  - Cardiac failure congestive [Unknown]
  - Blood glucose abnormal [Recovering/Resolving]
